FAERS Safety Report 4595009-1 (Version None)
Quarter: 2005Q1

REPORT INFORMATION
  Report Type: 
  Country: None (occurrence: None)
  Receive Date: 20050223
  Receipt Date: 20050210
  Transmission Date: 20050727
  Serious: Yes (Other)
  Sender: FDA-Public Use
  Company Number: 2005029779

PATIENT
  Age: 51 Year
  Sex: Female

DRUGS (4)
  1. CELECOXIB (CELECOXIB) [Suspect]
     Indication: ARTHRALGIA
     Dosage: (200 MG, UNKNOWN), ORAL
     Route: 048
     Dates: start: 20040909, end: 20041120
  2. ESOMEPRAZOLE (ESOMEPRAZOLE) [Concomitant]
  3. FLUTICASONE PROPIONATE [Concomitant]
  4. MEFENAMIC ACID [Concomitant]

REACTIONS (3)
  - AMNESIA [None]
  - ANXIETY [None]
  - CRYING [None]
